FAERS Safety Report 16191845 (Version 1)
Quarter: 2019Q2

REPORT INFORMATION
  Report Type: Spontaneous
  Country: FR (occurrence: FR)
  Receive Date: 20190412
  Receipt Date: 20190412
  Transmission Date: 20190711
  Serious: Yes (Hospitalization, Other)
  Sender: FDA-Public Use
  Company Number: FR-PFIZER INC-2019157179

PATIENT
  Age: 79 Year
  Sex: Male

DRUGS (13)
  1. INIPOMP [Suspect]
     Active Substance: PANTOPRAZOLE SODIUM
     Dosage: UNK
     Route: 048
  2. LEVOTHYROX [Concomitant]
     Active Substance: LEVOTHYROXINE
     Route: 048
  3. LANTUS [Concomitant]
     Active Substance: INSULIN GLARGINE
     Indication: DIABETES MELLITUS
     Dosage: 26 IU, 1X/DAY
     Route: 058
  4. LEXOMIL [Concomitant]
     Active Substance: BROMAZEPAM
     Dosage: 3 MG, UNK
     Route: 048
  5. CONTRAMAL [Concomitant]
     Active Substance: TRAMADOL HYDROCHLORIDE
     Dosage: 200 MG, 1X/DAY
     Route: 048
  6. LASILIX [FUROSEMIDE] [Interacting]
     Active Substance: FUROSEMIDE
     Dosage: 80 MG, UNK
     Route: 048
  7. GLUCOPHAGE [Concomitant]
     Active Substance: METFORMIN HYDROCHLORIDE
     Indication: DIABETES MELLITUS
     Dosage: 3000 MG, UNK
     Route: 048
  8. SEROPRAM [CITALOPRAM HYDROBROMIDE] [Concomitant]
     Dosage: UNK UNK, QD
     Route: 048
  9. RISPERDAL [Concomitant]
     Active Substance: RISPERIDONE
     Dosage: 5 MG, 1X/DAY
     Route: 048
  10. PLAVIX [Concomitant]
     Active Substance: CLOPIDOGREL BISULFATE
     Indication: MYOCARDIAL ISCHAEMIA
     Dosage: 75 MG, 1X/DAY
     Route: 048
  11. BETASERC [BETAHISTINE] [Concomitant]
     Dosage: 72 MG, UNK
     Route: 048
  12. MICARDIS PLUS [Interacting]
     Active Substance: HYDROCHLOROTHIAZIDE\TELMISARTAN
     Dosage: UNK, 1X/DAY
     Route: 048
  13. STILNOX [Concomitant]
     Active Substance: ZOLPIDEM TARTRATE
     Dosage: 10 MG, 1X/DAY
     Route: 048

REACTIONS (2)
  - Drug interaction [Recovered/Resolved]
  - Renal failure [Recovered/Resolved]

NARRATIVE: CASE EVENT DATE: 20060516
